FAERS Safety Report 23289537 (Version 2)
Quarter: 2024Q3

REPORT INFORMATION
  Report Type: Spontaneous
  Country: IT (occurrence: IT)
  Receive Date: 20231212
  Receipt Date: 20240821
  Transmission Date: 20241017
  Serious: Yes (Hospitalization, Other)
  Sender: MYLAN
  Company Number: IT-ROCHE-3455327

PATIENT
  Age: 68 Year
  Sex: Female

DRUGS (4)
  1. MYCOPHENOLATE MOFETIL [Suspect]
     Active Substance: MYCOPHENOLATE MOFETIL
     Indication: Prophylaxis against transplant rejection
     Dosage: UNK
     Route: 065
  2. MYCOPHENOLATE MOFETIL [Suspect]
     Active Substance: MYCOPHENOLATE MOFETIL
     Indication: Immunosuppressant drug therapy
  3. TACROLIMUS [Concomitant]
     Active Substance: TACROLIMUS
     Indication: Prophylaxis against transplant rejection
     Dosage: UNK
     Route: 065
  4. TACROLIMUS [Concomitant]
     Active Substance: TACROLIMUS
     Indication: Immunosuppressant drug therapy

REACTIONS (9)
  - Respiratory failure [Recovering/Resolving]
  - Hypogammaglobulinaemia [Recovering/Resolving]
  - Bronchopulmonary aspergillosis [Recovered/Resolved]
  - Stenotrophomonas infection [Recovering/Resolving]
  - Bronchiectasis [Recovering/Resolving]
  - Respiratory tract infection bacterial [Recovered/Resolved]
  - Aspergillus infection [Recovering/Resolving]
  - Pseudomonas infection [Recovering/Resolving]
  - Respiratory tract infection [Recovering/Resolving]
